FAERS Safety Report 6009930-0 (Version None)
Quarter: 2008Q4

REPORT INFORMATION
  Report Type: 
  Country: None (occurrence: None)
  Receive Date: 20081216
  Receipt Date: 20081202
  Transmission Date: 20090506
  Serious: Yes (Other)
  Sender: FDA-Public Use
  Company Number: 2008AL012259

PATIENT
  Age: 52 Year
  Sex: Female
  Weight: 102.5129 kg

DRUGS (5)
  1. DIGOXIN [Suspect]
     Dosage: 0.125 MG, PO , QD
     Route: 048
  2. SYNTHROID [Concomitant]
  3. LISINOPRIL [Concomitant]
  4. LIPITOR [Concomitant]
  5. ASPIRIN [Concomitant]

REACTIONS (5)
  - CARPAL TUNNEL SYNDROME [None]
  - HEADACHE [None]
  - PALPITATIONS [None]
  - SCAN MYOCARDIAL PERFUSION ABNORMAL [None]
  - SINUS BRADYCARDIA [None]
